FAERS Safety Report 20112193 (Version 5)
Quarter: 2022Q1

REPORT INFORMATION
  Report Type: Spontaneous
  Country: GB (occurrence: GB)
  Receive Date: 20211125
  Receipt Date: 20220211
  Transmission Date: 20220423
  Serious: Yes (Hospitalization, Other)
  Sender: FDA-Public Use
  Company Number: None

PATIENT
  Age: 33 Year
  Sex: Female
  Weight: 72.3 kg

DRUGS (1)
  1. NOVORAPID [Suspect]
     Active Substance: INSULIN ASPART
     Indication: Type 1 diabetes mellitus
     Dosage: 15.7 IU
     Route: 058

REACTIONS (2)
  - Diabetic ketoacidosis [Recovered/Resolved]
  - Product leakage [Recovered/Resolved]

NARRATIVE: CASE EVENT DATE: 20211113
